FAERS Safety Report 25541130 (Version 2)
Quarter: 2025Q3

REPORT INFORMATION
  Report Type: Spontaneous
  Country: US (occurrence: US)
  Receive Date: 20250710
  Receipt Date: 20250718
  Transmission Date: 20251021
  Serious: Yes (Life-Threatening, Hospitalization)
  Sender: JOHNSON AND JOHNSON
  Company Number: US-JNJFOC-20250709448

PATIENT
  Age: 70 Year
  Sex: Male

DRUGS (1)
  1. CARVYKTI [Suspect]
     Active Substance: CILTACABTAGENE AUTOLEUCEL
     Indication: Plasma cell myeloma
     Dates: start: 20241015, end: 20241015

REACTIONS (6)
  - Immune-mediated enterocolitis [Not Recovered/Not Resolved]
  - Cytokine release syndrome [Unknown]
  - Large intestine perforation [Recovering/Resolving]
  - Bacteraemia [Unknown]
  - Hypotension [Unknown]
  - Lactic acidosis [Unknown]

NARRATIVE: CASE EVENT DATE: 20241001
